FAERS Safety Report 20194076 (Version 1)
Quarter: 2021Q4

REPORT INFORMATION
  Report Type: Spontaneous
  Country: JP (occurrence: JP)
  Receive Date: 20211216
  Receipt Date: 20211216
  Transmission Date: 20220303
  Serious: Yes (Hospitalization, Other)
  Sender: FDA-Public Use
  Company Number: JP-OTSUKA-2021_041206

PATIENT
  Age: 75 Year
  Sex: Female

DRUGS (9)
  1. ABILIFY [Suspect]
     Active Substance: ARIPIPRAZOLE
     Indication: Bipolar disorder
     Dosage: 1 TABLET (24MG), QD, AFTER DINNER
     Route: 048
     Dates: start: 20211118
  2. ABILIFY [Suspect]
     Active Substance: ARIPIPRAZOLE
     Indication: Bipolar disorder
     Dosage: UNK
     Route: 048
     Dates: start: 2019
  3. ABILIFY [Suspect]
     Active Substance: ARIPIPRAZOLE
     Indication: Panic disorder
  4. ABILIFY [Suspect]
     Active Substance: ARIPIPRAZOLE
     Indication: Bipolar disorder
     Dosage: UNK
     Route: 048
     Dates: start: 2019
  5. ABILIFY [Suspect]
     Active Substance: ARIPIPRAZOLE
     Indication: Panic disorder
     Dosage: UNK, AFTER BREAKFAST
     Route: 048
  6. VALPROATE SODIUM [Interacting]
     Active Substance: VALPROATE SODIUM
     Indication: Product used for unknown indication
     Dosage: UNK
     Route: 065
  7. LITHIUM CARBONATE [Concomitant]
     Active Substance: LITHIUM CARBONATE
     Indication: Product used for unknown indication
     Dosage: UNK
     Route: 065
  8. VALPROATE SODIUM [Concomitant]
     Active Substance: VALPROATE SODIUM
     Indication: Product used for unknown indication
     Dosage: UNK
     Route: 065
  9. DAYVIGO [Concomitant]
     Active Substance: LEMBOREXANT
     Indication: Product used for unknown indication
     Dosage: UNK
     Route: 065

REACTIONS (28)
  - Arrhythmia [Unknown]
  - Chest discomfort [Unknown]
  - Feeding disorder [Unknown]
  - Adverse reaction [Unknown]
  - Affective disorder [Unknown]
  - Protein urine present [Unknown]
  - Protein urine present [Unknown]
  - Movement disorder [Unknown]
  - Pollakiuria [Unknown]
  - Hyperphagia [Unknown]
  - Feeling abnormal [Unknown]
  - Glucose urine present [Unknown]
  - Thirst [Unknown]
  - Malaise [Unknown]
  - Malaise [Unknown]
  - Dyspnoea [Unknown]
  - Dyspnoea [Unknown]
  - Dyspnoea [Unknown]
  - Hypoglycaemia [Unknown]
  - Asthenia [Unknown]
  - Blood glucose increased [Unknown]
  - Nausea [Unknown]
  - Somnolence [Unknown]
  - Somnolence [Unknown]
  - Musculoskeletal stiffness [Unknown]
  - Restlessness [Unknown]
  - Product use in unapproved indication [Unknown]
  - Product use in unapproved indication [Unknown]

NARRATIVE: CASE EVENT DATE: 20190101
